FAERS Safety Report 4597027-6 (Version None)
Quarter: 2005Q1

REPORT INFORMATION
  Report Type: 
  Country: None (occurrence: None)
  Receive Date: 20050228
  Receipt Date: 20050214
  Transmission Date: 20050727
  Serious: Yes (Hospitalization)
  Sender: FDA-Public Use
  Company Number: GXKR2005GB00593

PATIENT
  Age: 67 Year
  Sex: Male

DRUGS (5)
  1. KETOPROFEN [Suspect]
     Indication: SPINAL OSTEOARTHRITIS
     Dosage: 200 MG, QD, ORAL
     Route: 048
     Dates: start: 20041020
  2. ROFECOXIB [Suspect]
     Indication: SPINAL OSTEOARTHRITIS
     Dosage: 12.5 MG, ORAL
     Route: 048
     Dates: start: 20040701, end: 20041020
  3. LISINOPRIL [Concomitant]
  4. BENDROFLUAZIDE (BENDROFLUAZIDE) [Concomitant]
  5. PRAVASTATIN [Concomitant]

REACTIONS (4)
  - BARRETT'S OESOPHAGUS [None]
  - GASTRIC ULCER [None]
  - GASTRITIS EROSIVE [None]
  - HAEMATEMESIS [None]
